FAERS Safety Report 6480160-1 (Version None)
Quarter: 2009Q4

REPORT INFORMATION
  Report Type: 
  Country: None (occurrence: None)
  Receive Date: 20091208
  Receipt Date: 20091128
  Transmission Date: 20100525
  Serious: Yes (Hospitalization)
  Sender: FDA-Public Use
  Company Number: GR-ABBOTT-09P-066-0611429-00

PATIENT
  Age: 34 Year
  Sex: Female

DRUGS (3)
  1. KLARICID [Suspect]
     Indication: RESPIRATORY TRACT INFECTION
     Route: 048
     Dates: start: 20091126, end: 20091128
  2. KLARICID [Suspect]
     Route: 048
  3. DEXA RHINASPRAY [Concomitant]
     Indication: RESPIRATORY TRACT INFECTION
     Dosage: SPRAY
     Route: 045
     Dates: start: 20091127

REACTIONS (1)
  - RASH PRURITIC [None]
